FAERS Safety Report 9981467 (Version 1)
Quarter: 2014Q1

REPORT INFORMATION
  Report Type: Spontaneous
  Country: PH (occurrence: PH)
  Receive Date: 20140307
  Receipt Date: 20140307
  Transmission Date: 20141002
  Serious: Yes (Death, Other)
  Sender: FDA-Public Use
  Company Number: PH-MERCK-1403PHL001493

PATIENT
  Sex: Female

DRUGS (1)
  1. EZETROL [Suspect]
     Dosage: 1 TABLET, QD
     Route: 048
     Dates: start: 2010

REACTIONS (1)
  - Multi-organ failure [Fatal]
